FAERS Safety Report 4711022-5 (Version None)
Quarter: 2005Q3

REPORT INFORMATION
  Report Type: 
  Country: None (occurrence: None)
  Receive Date: 20050707
  Receipt Date: 20050624
  Transmission Date: 20060218
  Serious: No
  Sender: FDA-Public Use
  Company Number: 11722

PATIENT
  Age: 4 Year
  Sex: Male

DRUGS (3)
  1. METHOTREXATE [Suspect]
     Indication: ACUTE LYMPHOCYTIC LEUKAEMIA
     Dosage: 12 MG TOTAL IT
  2. CYTOSINE ARABINOSIDE [Suspect]
     Indication: ACUTE LYMPHOCYTIC LEUKAEMIA
     Dosage: 36 MG TOTAL IT
  3. PREDNISOLONE [Suspect]
     Indication: ACUTE LYMPHOCYTIC LEUKAEMIA
     Dosage: IT

REACTIONS (6)
  - ARACHNOIDITIS [None]
  - CSF PROTEIN INCREASED [None]
  - DISEASE PROGRESSION [None]
  - MYELOPATHY [None]
  - URINARY INCONTINENCE [None]
  - URINARY RETENTION [None]
